FAERS Safety Report 7270503-3 (Version None)
Quarter: 2011Q1

REPORT INFORMATION
  Report Type: 
  Country: None (occurrence: None)
  Receive Date: 20110202
  Receipt Date: 20110124
  Transmission Date: 20110831
  Serious: Yes (Other)
  Sender: FDA-Public Use
  Company Number: US-ELI_LILLY_AND_COMPANY-US201101006195

PATIENT

DRUGS (1)
  1. ALIMTA [Suspect]
     Dosage: UNK, UNKNOWN
     Route: 065

REACTIONS (5)
  - LUNG CANCER METASTATIC [None]
  - STAPHYLOCOCCAL BACTERAEMIA [None]
  - NEUTROPENIA [None]
  - INFECTION [None]
  - CANDIDA SEPSIS [None]
